FAERS Safety Report 10075983 (Version 1)
Quarter: 2014Q2

REPORT INFORMATION
  Report Type: Spontaneous
  Country: US (occurrence: None)
  Receive Date: 20140410
  Receipt Date: 20140410
  Transmission Date: 20141212
  Serious: Yes (Other)
  Sender: FDA-Public Use
  Company Number: SYM-2014-19453

PATIENT
  Age: 23 Year
  Sex: Male

DRUGS (1)
  1. XENAZINE [Suspect]
     Indication: HUNTINGTON^S DISEASE
     Dosage: 12.5MG IN THE MORNING, 25MG AT AN UNSPECIFIED TIME, 2 IN 1 D, ORAL
     Dates: start: 20131017

REACTIONS (3)
  - Hepatomegaly [None]
  - Splenomegaly [None]
  - Splenic lesion [None]
